FAERS Safety Report 25856412 (Version 1)
Quarter: 2025Q3

REPORT INFORMATION
  Report Type: Report from Study
  Country: US (occurrence: US)
  Receive Date: 20250928
  Receipt Date: 20250928
  Transmission Date: 20251020
  Serious: Yes (Hospitalization)
  Sender: BIOGEN
  Company Number: US-BIOGEN-2025BI01324833

PATIENT
  Sex: Female

DRUGS (1)
  1. TYSABRI [Suspect]
     Active Substance: NATALIZUMAB
     Indication: Multiple sclerosis
     Route: 050
     Dates: start: 20191017

REACTIONS (4)
  - Lithiasis [Unknown]
  - Memory impairment [Unknown]
  - Pneumonia [Unknown]
  - Urinary tract infection [Not Recovered/Not Resolved]
